FAERS Safety Report 23986094 (Version 1)
Quarter: 2024Q2

REPORT INFORMATION
  Report Type: Spontaneous
  Country: US (occurrence: US)
  Receive Date: 20240618
  Receipt Date: 20240618
  Transmission Date: 20240716
  Serious: No
  Sender: FDA-Public Use
  Company Number: US-Calliditas-2024CAL01025

PATIENT
  Age: 56 Year
  Sex: Female

DRUGS (1)
  1. TARPEYO [Suspect]
     Active Substance: BUDESONIDE
     Indication: IgA nephropathy
     Route: 048
     Dates: start: 20240410

REACTIONS (8)
  - Protein total increased [Unknown]
  - Alopecia [Unknown]
  - Weight increased [Unknown]
  - Increased appetite [Unknown]
  - Vision blurred [Unknown]
  - Photophobia [Unknown]
  - Arthralgia [Unknown]
  - Joint swelling [Unknown]
